FAERS Safety Report 24385731 (Version 1)
Quarter: 2024Q4

REPORT INFORMATION
  Report Type: Spontaneous
  Country: US (occurrence: None)
  Receive Date: 20241001
  Receipt Date: 20241001
  Transmission Date: 20250115
  Serious: Yes (Hospitalization)
  Sender: Public
  Company Number: None

PATIENT
  Sex: Male

DRUGS (15)
  1. AMBRISENTAN [Suspect]
     Active Substance: AMBRISENTAN
     Indication: Pulmonary arterial hypertension
     Dosage: FREQUENCY : DAILY;?
     Route: 048
  2. ATROVENT HFA [Concomitant]
     Active Substance: IPRATROPIUM BROMIDE
  3. CLONIDINE [Concomitant]
     Active Substance: CLONIDINE
  4. VITAMIN D [Concomitant]
     Active Substance: VITAMIN D NOS
  5. ERYTHROMYCIN ESTOLATE [Concomitant]
     Active Substance: ERYTHROMYCIN ESTOLATE
  6. SODIUM CHLORIDE [Concomitant]
     Active Substance: SODIUM CHLORIDE
  7. SPIRONOLACTONE [Concomitant]
     Active Substance: SPIRONOLACTONE
  8. VENTOLIN [Concomitant]
     Active Substance: ALBUTEROL SULFATE
  9. FUROSEMIDE [Concomitant]
     Active Substance: FUROSEMIDE
  10. VITAMINS [Concomitant]
     Active Substance: VITAMINS
  11. DIURIL [Concomitant]
     Active Substance: CHLOROTHIAZIDE
  12. FLUTICASONE PROPIONATE NA [Concomitant]
  13. DIAZEPAM [Concomitant]
     Active Substance: DIAZEPAM
  14. POTASSIUM CHLORIDE [Concomitant]
     Active Substance: POTASSIUM CHLORIDE
  15. GABAPENTIN [Concomitant]
     Active Substance: GABAPENTIN

REACTIONS (1)
  - Product physical issue [None]
